FAERS Safety Report 10058184 (Version 2)
Quarter: 2014Q2

REPORT INFORMATION
  Report Type: Spontaneous
  Country: US (occurrence: US)
  Receive Date: 20140404
  Receipt Date: 20140612
  Transmission Date: 20141212
  Serious: No
  Sender: FDA-Public Use
  Company Number: US-PFIZER INC-2014095354

PATIENT
  Age: 53 Year
  Sex: Male
  Weight: 82.1 kg

DRUGS (1)
  1. LYRICA [Suspect]
     Indication: SPINAL CORD INJURY
     Dosage: 50 MG, 3X/DAY
     Dates: start: 201402

REACTIONS (4)
  - Dizziness [Unknown]
  - Gait disturbance [Unknown]
  - Disorientation [Unknown]
  - Faecal incontinence [Unknown]
